FAERS Safety Report 9775618 (Version 2)
Quarter: 2014Q2

REPORT INFORMATION
  Report Type: Spontaneous
  Country: US (occurrence: US)
  Receive Date: 20131220
  Receipt Date: 20140530
  Transmission Date: 20141212
  Serious: Yes (Death)
  Sender: FDA-Public Use
  Company Number: US-BAYER-2013-154446

PATIENT
  Age: 41 Year
  Sex: Female

DRUGS (3)
  1. YASMIN [Suspect]
  2. YAZ [Suspect]
  3. FERROUS SULFATE [Concomitant]
     Dosage: 325 MG, UNK
     Route: 048

REACTIONS (1)
  - Pulmonary embolism [Fatal]
